FAERS Safety Report 5854720-2 (Version None)
Quarter: 2008Q3

REPORT INFORMATION
  Report Type: 
  Country: None (occurrence: None)
  Receive Date: 20080822
  Receipt Date: 20080808
  Transmission Date: 20090109
  Serious: Yes (Other)
  Sender: FDA-Public Use
  Company Number: JP-GENENTECH-247159

PATIENT
  Sex: Male
  Weight: 56.7 kg

DRUGS (21)
  1. BEVACIZUMAB [Suspect]
     Indication: COLON CANCER METASTATIC
     Dosage: 5 MG/KG, SINGLE
     Route: 041
     Dates: start: 20070731, end: 20071207
  2. BEVACIZUMAB [Suspect]
     Dosage: 5 MG/KG, SINGLE
     Route: 042
     Dates: start: 20070928
  3. BEVACIZUMAB [Suspect]
     Dosage: 5 MG/KG, SINGLE
     Route: 042
     Dates: start: 20071012
  4. BEVACIZUMAB [Suspect]
     Dosage: 5 MG/KG, SINGLE
     Route: 042
     Dates: start: 20071123
  5. BEVACIZUMAB [Suspect]
     Dosage: 5 MG/KG, SINGLE
     Route: 042
     Dates: start: 20071207, end: 20071207
  6. OXALIPLATIN [Suspect]
     Indication: COLON CANCER METASTATIC
     Dosage: 85 MG/M2, QD
     Route: 041
     Dates: start: 20070731, end: 20071221
  7. ISOVORIN [Concomitant]
     Indication: COLON CANCER METASTATIC
     Dosage: 100 MG/M2, UNK
     Route: 041
     Dates: start: 20070731, end: 20071221
  8. FLUOROURACIL [Concomitant]
     Indication: COLON CANCER METASTATIC
     Dosage: 400 MG/M2, QD
     Route: 040
     Dates: start: 20070731, end: 20071222
  9. HIRUDOID [Concomitant]
     Indication: DRUG USE FOR UNKNOWN INDICATION
     Dosage: UNK, UNK
     Dates: start: 20070817, end: 20070831
  10. BIO-THREE [Concomitant]
     Indication: DRUG USE FOR UNKNOWN INDICATION
     Dosage: UNK, UNK
     Dates: start: 20070701, end: 20080129
  11. FERROMIA [Concomitant]
     Indication: DRUG USE FOR UNKNOWN INDICATION
     Dosage: UNK, UNK
     Dates: start: 20070718, end: 20080129
  12. LOXONIN [Concomitant]
     Indication: DRUG USE FOR UNKNOWN INDICATION
     Dosage: UNK, UNK
     Dates: start: 20070721
  13. CYTOTEC [Concomitant]
     Indication: DRUG USE FOR UNKNOWN INDICATION
     Dosage: 600 A?G, QD
     Dates: start: 20070702, end: 20080130
  14. SOLDEM [Concomitant]
     Indication: DRUG USE FOR UNKNOWN INDICATION
     Dates: start: 20070820, end: 20070820
  15. AMINO ACID NOS [Concomitant]
     Indication: DRUG USE FOR UNKNOWN INDICATION
     Dates: start: 20070822, end: 20070904
  16. ELECTROLYTES [Concomitant]
     Indication: DRUG USE FOR UNKNOWN INDICATION
     Dates: start: 20070822, end: 20070904
  17. GLUCOSE [Concomitant]
     Indication: DRUG USE FOR UNKNOWN INDICATION
     Dates: start: 20070822, end: 20070904
  18. MULTI-VITAMIN SUPPLEMENT [Concomitant]
     Indication: DRUG USE FOR UNKNOWN INDICATION
     Dates: start: 20070822, end: 20070904
  19. TIENAM [Concomitant]
     Indication: DRUG USE FOR UNKNOWN INDICATION
     Dates: start: 20070822, end: 20070826
  20. INTRALIPID 10% [Concomitant]
     Indication: DRUG USE FOR UNKNOWN INDICATION
     Dates: start: 20070824, end: 20070824
  21. BETAMETHASONE [Concomitant]
     Indication: DRUG USE FOR UNKNOWN INDICATION
     Dates: start: 20070825, end: 20070831

REACTIONS (4)
  - EPISTAXIS [None]
  - FALL [None]
  - JAW FRACTURE [None]
  - VISUAL FIELD DEFECT [None]
